FAERS Safety Report 8874734 (Version 2)
Quarter: 2014Q3

REPORT INFORMATION
  Report Type: Report from Study
  Country: US (occurrence: US)
  Receive Date: 20121023
  Receipt Date: 20140910
  Transmission Date: 20150326
  Serious: Yes (Other)
  Sender: FDA-Public Use
  Company Number: US-ROCHE-1135999

PATIENT
  Sex: Female

DRUGS (7)
  1. XELODA [Suspect]
     Active Substance: CAPECITABINE
     Indication: RECTAL ADENOCARCINOMA
     Route: 065
  2. CAMPTOSAR [Concomitant]
     Active Substance: IRINOTECAN HYDROCHLORIDE
  3. 5-FU [Concomitant]
     Active Substance: FLUOROURACIL
     Route: 048
  4. ESTRACE [Concomitant]
     Active Substance: ESTRADIOL
     Route: 065
  5. HERCEPTIN [Suspect]
     Active Substance: TRASTUZUMAB
     Indication: COLON CANCER
     Dosage: LOADING DOSE
     Route: 065
     Dates: start: 19981016
  6. INTERFERON ALFA-2A [Concomitant]
     Active Substance: INTERFERON ALFA-2A
     Route: 065
  7. HERCEPTIN [Suspect]
     Active Substance: TRASTUZUMAB
     Dosage: MAINTENANCE DOSE
     Route: 065

REACTIONS (9)
  - Flushing [Unknown]
  - Dermatitis exfoliative [Unknown]
  - Pain in extremity [Unknown]
  - Swelling [Unknown]
  - Off label use [Unknown]
  - Eye irritation [Recovered/Resolved]
  - Toxicity to various agents [Unknown]
  - Gait disturbance [Unknown]
  - Erythema [Unknown]
